FAERS Safety Report 13360388 (Version 1)
Quarter: 2017Q1

REPORT INFORMATION
  Report Type: Report from Study
  Country: JP (occurrence: JP)
  Receive Date: 20170322
  Receipt Date: 20170322
  Transmission Date: 20170429
  Serious: Yes (Hospitalization, Disabling, Other)
  Sender: FDA-Public Use
  Company Number: JP-BRISTOL-MYERS SQUIBB COMPANY-BMS-2017-016618

PATIENT
  Age: 87 Year
  Sex: Male
  Weight: 63.1 kg

DRUGS (10)
  1. AMOXICILLIN. [Concomitant]
     Active Substance: AMOXICILLIN
     Indication: OSTEOMYELITIS
     Dosage: 1 DF=250MG*6 TAB, UNK
     Route: 048
     Dates: start: 20160804
  2. IPILIMUMAB [Suspect]
     Active Substance: IPILIMUMAB
     Indication: MALIGNANT MELANOMA
     Dosage: 3 MG/KG, UNK
     Route: 065
     Dates: start: 20160929, end: 20160929
  3. IPILIMUMAB [Suspect]
     Active Substance: IPILIMUMAB
     Indication: PRODUCT USED FOR UNKNOWN INDICATION
     Dosage: 3 MG/KG, UNK
     Route: 065
     Dates: start: 20161020, end: 20161020
  4. IPILIMUMAB [Suspect]
     Active Substance: IPILIMUMAB
     Indication: PRODUCT USED FOR UNKNOWN INDICATION
     Dosage: 3 MG/KG, UNK
     Route: 065
     Dates: start: 20161110, end: 20161110
  5. MAGNESIUM OXIDE. [Concomitant]
     Active Substance: MAGNESIUM OXIDE
     Indication: CONSTIPATION
     Dosage: 3 TAB, 1 TAB=330 MG
     Route: 065
     Dates: start: 20161124
  6. IPILIMUMAB [Suspect]
     Active Substance: IPILIMUMAB
     Indication: PRODUCT USED FOR UNKNOWN INDICATION
     Dosage: 3 MG/KG, UNK
     Route: 065
     Dates: start: 20161216, end: 20161216
  7. DIFLAL [Concomitant]
     Indication: PRURITUS
     Dosage: 30 G, UNK
     Route: 065
     Dates: start: 20161006, end: 20161020
  8. OPDIVO [Suspect]
     Active Substance: NIVOLUMAB
     Indication: MALIGNANT MELANOMA
     Dosage: UNK
     Route: 065
     Dates: start: 201601, end: 201609
  9. URITOS [Concomitant]
     Active Substance: IMIDAFENACIN
     Indication: POLYURIA
     Dosage: 0.1 MG, UNK
     Route: 065
  10. XYZAL [Concomitant]
     Active Substance: LEVOCETIRIZINE DIHYDROCHLORIDE
     Indication: PRURITUS
     Dosage: 5 MG, UNK
     Route: 048
     Dates: start: 20161006, end: 20161009

REACTIONS (6)
  - Gastrointestinal perforation [Recovered/Resolved with Sequelae]
  - Skin disorder [Recovered/Resolved]
  - Intussusception [Not Recovered/Not Resolved]
  - Anaemia [Unknown]
  - Transfusion [Unknown]
  - Hypothyroidism [Recovered/Resolved]

NARRATIVE: CASE EVENT DATE: 20161020
